FAERS Safety Report 4284394-6 (Version None)
Quarter: 2004Q1

REPORT INFORMATION
  Report Type: 
  Country: None (occurrence: None)
  Receive Date: 20040203
  Receipt Date: 20040121
  Transmission Date: 20041129
  Serious: Yes (Other)
  Sender: FDA-Public Use
  Company Number: PHBS2004GR01338

PATIENT
  Age: 45 Year
  Sex: Female

DRUGS (5)
  1. THIORIDAZINE HCL [Suspect]
     Indication: PSYCHOTIC DISORDER
     Dosage: 150 MG/D
  2. HALOPERIDOL [Concomitant]
     Dosage: 20 MG/D
     Route: 065
  3. ANTIADIPOSITUM [Concomitant]
     Dosage: 26.25 MG/D
     Route: 065
  4. ANTIADIPOSITUM [Concomitant]
     Dosage: 52.50 MG/D
     Route: 065
  5. ANTIADIPOSITUM [Concomitant]
     Dosage: 80 MG/D
     Route: 065

REACTIONS (7)
  - DEPRESSION [None]
  - EXTRAPYRAMIDAL DISORDER [None]
  - FEAR [None]
  - HALLUCINATIONS, MIXED [None]
  - PSYCHIATRIC SYMPTOM [None]
  - SELF-INJURIOUS IDEATION [None]
  - SUICIDAL IDEATION [None]
